FAERS Safety Report 24119763 (Version 2)
Quarter: 2024Q3

REPORT INFORMATION
  Report Type: Spontaneous
  Country: US (occurrence: US)
  Receive Date: 20240722
  Receipt Date: 20240919
  Transmission Date: 20241016
  Serious: No
  Sender: ROCHE
  Company Number: US-ROCHE-10000029941

PATIENT
  Sex: Male

DRUGS (3)
  1. HEMLIBRA [Suspect]
     Active Substance: EMICIZUMAB-KXWH
     Indication: Factor VIII deficiency
     Dosage: STRENGTH- 300 MG/2ML
     Route: 058
     Dates: start: 201901
  2. HEMLIBRA [Suspect]
     Active Substance: EMICIZUMAB-KXWH
     Dosage: STRENGTH- 300 MG/2ML
     Route: 058
     Dates: start: 201901
  3. OTEZLA [Concomitant]
     Active Substance: APREMILAST

REACTIONS (3)
  - Haemorrhage [Unknown]
  - Haematuria [Unknown]
  - Injury [Unknown]
